FAERS Safety Report 18506872 (Version 10)
Quarter: 2024Q4

REPORT INFORMATION
  Report Type: Spontaneous
  Country: US (occurrence: US)
  Receive Date: 20201116
  Receipt Date: 20241021
  Transmission Date: 20250115
  Serious: Yes (Hospitalization)
  Sender: PFIZER
  Company Number: US-PFIZER INC-2020447691

PATIENT
  Age: 65 Year
  Sex: Female
  Weight: 90.703 kg

DRUGS (5)
  1. IBRANCE [Suspect]
     Active Substance: PALBOCICLIB
     Indication: Breast cancer female
     Dosage: 125 MG, CYCLIC [1 DAILY FOR 21 DAYS, 7 DAYS OFF IN EVERY 28 DAYS PER CYCLE]
     Route: 048
     Dates: start: 20200925
  2. ANASTROZOLE [Concomitant]
     Active Substance: ANASTROZOLE
     Dosage: 1 MG
  3. TRULICITY [Concomitant]
     Active Substance: DULAGLUTIDE
     Dosage: 1.5 MG
  4. METFORMIN HYDROCHLORIDE [Concomitant]
     Active Substance: METFORMIN HYDROCHLORIDE
     Dosage: 1000 MG
  5. FENOFIBRATE [Concomitant]
     Active Substance: FENOFIBRATE
     Dosage: 134 MG

REACTIONS (4)
  - Muscular weakness [Unknown]
  - Product dispensing issue [Unknown]
  - Product dose omission issue [Unknown]
  - Cardiac disorder [Unknown]

NARRATIVE: CASE EVENT DATE: 20200101
